FAERS Safety Report 14304583 (Version 2)
Quarter: 2017Q4

REPORT INFORMATION
  Report Type: Spontaneous
  Country: BE (occurrence: BE)
  Receive Date: 20171219
  Receipt Date: 20171229
  Transmission Date: 20180321
  Serious: Yes (Death, Hospitalization)
  Sender: FDA-Public Use
  Company Number: BE-TEVA-2017-BE-833338

PATIENT
  Age: 27 Year
  Sex: Female

DRUGS (16)
  1. MYCOPHENOLATE MOFETIL. [Suspect]
     Active Substance: MYCOPHENOLATE MOFETIL
     Indication: PROPHYLAXIS AGAINST GRAFT VERSUS HOST DISEASE
     Route: 065
  2. CYCLOPHOSPHAMIDE. [Suspect]
     Active Substance: CYCLOPHOSPHAMIDE
     Indication: BONE MARROW CONDITIONING REGIMEN
     Route: 065
  3. ANTI-THYMOCYTE GLOBULIN (RABBIT) NOS [Suspect]
     Active Substance: LAPINE T-LYMPHOCYTE IMMUNE GLOBULIN
     Indication: BONE MARROW CONDITIONING REGIMEN
     Route: 065
  4. IMMUNE GLOBULIN [Concomitant]
     Active Substance: HUMAN IMMUNOGLOBULIN G
     Indication: SUPPORTIVE CARE
     Dosage: WEEKLY
     Route: 065
  5. CASPOFUNGIN [Concomitant]
     Active Substance: CASPOFUNGIN
     Route: 065
  6. FLUDARABINE [Suspect]
     Active Substance: FLUDARABINE PHOSPHATE
     Indication: BONE MARROW CONDITIONING REGIMEN
     Route: 065
  7. TACROLIMUS. [Suspect]
     Active Substance: TACROLIMUS
     Indication: PROPHYLAXIS AGAINST GRAFT VERSUS HOST DISEASE
     Route: 065
  8. BUSULFAN. [Suspect]
     Active Substance: BUSULFAN
     Indication: BONE MARROW CONDITIONING REGIMEN
     Route: 065
  9. POSACONAZOLE [Suspect]
     Active Substance: POSACONAZOLE
     Indication: ORAL CANDIDIASIS
     Route: 065
  10. TAZOCILLIN [Concomitant]
     Active Substance: PIPERACILLIN SODIUM\TAZOBACTAM SODIUM
     Route: 065
  11. VALGANCICLOVIR. [Suspect]
     Active Substance: VALGANCICLOVIR
     Indication: CYTOMEGALOVIRUS INFECTION
     Route: 065
  12. URSODEOXYCHOLIC ACID [Concomitant]
     Active Substance: URSODIOL
     Route: 065
  13. FOSCAVIR [Concomitant]
     Active Substance: FOSCARNET SODIUM
     Route: 065
  14. CEFTAZIDIME. [Concomitant]
     Active Substance: CEFTAZIDIME
     Route: 065
  15. CYCLOPHOSPHAMIDE. [Suspect]
     Active Substance: CYCLOPHOSPHAMIDE
     Route: 050
  16. METRONIDAZOLE. [Concomitant]
     Active Substance: METRONIDAZOLE
     Route: 065

REACTIONS (15)
  - Cholestasis [Fatal]
  - Oral candidiasis [Unknown]
  - Cytomegalovirus infection [Unknown]
  - Neutropenia [Unknown]
  - Adenoviral hepatitis [Fatal]
  - Pancytopenia [Unknown]
  - Hepatic necrosis [Fatal]
  - Haemorrhage [Fatal]
  - Staphylococcal sepsis [Unknown]
  - Hepatic failure [Fatal]
  - Toxicity to various agents [Unknown]
  - Liver function test abnormal [Unknown]
  - Disseminated intravascular coagulation [Fatal]
  - Hepatocellular injury [Fatal]
  - Bone marrow toxicity [Unknown]
